FAERS Safety Report 7037297-8 (Version None)
Quarter: 2010Q4

REPORT INFORMATION
  Report Type: 
  Country: None (occurrence: None)
  Receive Date: 20101011
  Receipt Date: 20100928
  Transmission Date: 20110411
  Serious: Yes (Other)
  Sender: FDA-Public Use
  Company Number: US-ELI_LILLY_AND_COMPANY-US201009004201

PATIENT
  Sex: Female

DRUGS (12)
  1. FORTEO [Suspect]
     Indication: OSTEOPOROSIS
     Dosage: 20 UG, DAILY (1/D)
     Route: 058
     Dates: start: 20100409
  2. PREDNISONE [Concomitant]
  3. ORENCIA [Concomitant]
     Indication: RHEUMATOID ARTHRITIS
  4. METHOTREXATE [Concomitant]
     Indication: RHEUMATOID ARTHRITIS
  5. FOLIC ACID [Concomitant]
  6. MULTI-VITAMIN [Concomitant]
  7. VITAMIN D3 [Concomitant]
  8. VERAPAMIL [Concomitant]
     Indication: SUPRAVENTRICULAR TACHYCARDIA
  9. ATIVAN [Concomitant]
     Dosage: UNK, EACH EVENING
  10. PROZAC [Concomitant]
     Dosage: UNK, EACH EVENING
  11. TOPROL-XL [Concomitant]
     Indication: SUPRAVENTRICULAR TACHYCARDIA
     Dosage: UNK, AS NEEDED
  12. PRILOSEC [Concomitant]

REACTIONS (2)
  - SEBACEOUS ADENOMA [None]
  - SKIN DISORDER [None]
